FAERS Safety Report 21198622 (Version 53)
Quarter: 2025Q3

REPORT INFORMATION
  Report Type: Spontaneous
  Country: GB (occurrence: GB)
  Receive Date: 20220811
  Receipt Date: 20250911
  Transmission Date: 20251020
  Serious: Yes (Death, Hospitalization, Other)
  Sender: AMGEN
  Company Number: GB-Crescent Pharma Limited-001202203-000055

PATIENT
  Age: 59 Year
  Sex: Male
  Weight: 62 kg

DRUGS (209)
  1. TRASTUZUMAB [Suspect]
     Active Substance: TRASTUZUMAB
     Indication: Breast cancer metastatic
     Route: 065
     Dates: start: 20150930
  2. TRASTUZUMAB [Suspect]
     Active Substance: TRASTUZUMAB
     Route: 065
     Dates: start: 20151130
  3. TRASTUZUMAB [Suspect]
     Active Substance: TRASTUZUMAB
     Dosage: 1827 MILLIGRAM, QWK
     Route: 042
     Dates: start: 20150930
  4. TRASTUZUMAB [Suspect]
     Active Substance: TRASTUZUMAB
     Dosage: 1827 MILLIGRAM, QWK
     Route: 065
     Dates: start: 20150930
  5. TRASTUZUMAB [Suspect]
     Active Substance: TRASTUZUMAB
     Dosage: 3654 MILLIGRAM, QWK
     Route: 065
     Dates: start: 20151130
  6. TRASTUZUMAB [Suspect]
     Active Substance: TRASTUZUMAB
     Dosage: 1827 MILLIGRAM, QWK
     Route: 065
     Dates: start: 20150930
  7. TRASTUZUMAB [Suspect]
     Active Substance: TRASTUZUMAB
     Dosage: 420 MILLIGRAM, Q3WK (CUMULATIVE DOSE: 8362.875 MG)
     Route: 065
  8. TRASTUZUMAB [Suspect]
     Active Substance: TRASTUZUMAB
     Dosage: 609 MG, Q3W, (1799.20 MG)
     Route: 065
     Dates: start: 20150930
  9. TRASTUZUMAB [Suspect]
     Active Substance: TRASTUZUMAB
     Dosage: 609 MG, Q3W, (1799.20 MG)
     Route: 065
     Dates: start: 20150930
  10. TRASTUZUMAB [Suspect]
     Active Substance: TRASTUZUMAB
     Dosage: 840 MG, Q3WK, CUMULATIVE DOSE: 2481.6667 MG
     Route: 065
     Dates: start: 20150930
  11. TRASTUZUMAB [Suspect]
     Active Substance: TRASTUZUMAB
     Dosage: 609 MILLIGRAM, Q3WK
     Route: 040
     Dates: start: 20150930
  12. TRASTUZUMAB [Suspect]
     Active Substance: TRASTUZUMAB
     Dosage: 1218 MILLIGRAM, QWK
     Route: 040
     Dates: start: 20150930
  13. TRASTUZUMAB [Suspect]
     Active Substance: TRASTUZUMAB
     Route: 040
     Dates: start: 20230930
  14. TRASTUZUMAB [Suspect]
     Active Substance: TRASTUZUMAB
     Dosage: 1827 MILLIGRAM, QWK (609 MG, 3/W, CUMULATIVE DOSE TO FIRST REACTION: 8362.875 MG, ADDITIONAL INFORMA
     Route: 040
     Dates: start: 20150930
  15. TRASTUZUMAB [Suspect]
     Active Substance: TRASTUZUMAB
     Dosage: 609 MILLIGRAM, Q3WK ((ADDITIONAL INFORMATION ON DRUG (FREE TEXT): CLOZARIL ADDITIONAL INFO: OFF LABE
     Route: 065
  16. TRASTUZUMAB [Suspect]
     Active Substance: TRASTUZUMAB
     Dosage: 840 MILLIGRAM, Q3WK (CUMULATIVE DOSE TO FIRST REACTION: 8362.875 MG, ADDITIONAL INFORMATION ON DRUG
     Route: 065
  17. TRASTUZUMAB [Suspect]
     Active Substance: TRASTUZUMAB
     Dosage: 420 MILLIGRAM, QWK
     Route: 065
     Dates: start: 20150930
  18. TRASTUZUMAB [Suspect]
     Active Substance: TRASTUZUMAB
     Dosage: 420 MILLIGRAM, Q3WK (CUMULATIVE DOSE TO FIRST REACTION: 8362.875 MG, ADDITIONAL INFORMATION ON DRUG
     Route: 065
  19. TRASTUZUMAB [Suspect]
     Active Substance: TRASTUZUMAB
     Route: 040
     Dates: start: 20150930
  20. TRASTUZUMAB [Suspect]
     Active Substance: TRASTUZUMAB
     Dosage: 1827 MILLIGRAM, QWK (ADDITIONAL INFORMATION ON DRUG (FREE TEXT): CLOZARIL ADDITIONAL INFO: OFF LABEL
     Route: 065
     Dates: start: 20150930
  21. TRASTUZUMAB [Suspect]
     Active Substance: TRASTUZUMAB
     Dosage: 420 MILLIGRAM, Q3WK (ADDITIONAL INFORMATION ON DRUG (FREE TEXT): CLOZARIL ADDITIONAL INFO: OFF LABEL
     Route: 065
  22. TRASTUZUMAB [Suspect]
     Active Substance: TRASTUZUMAB
     Dosage: 609 MILLIGRAM, Q3WK (ADDITIONAL INFORMATION ON DRUG (FREE TEXT): CLOZARIL ADDITIONAL INFO: OFF LABEL
     Route: 040
     Dates: start: 20150930
  23. TRASTUZUMAB [Suspect]
     Active Substance: TRASTUZUMAB
     Dosage: 609 MILLIGRAM, Q2WK (ADDITIONAL INFORMATION ON DRUG (FREE TEXT): CLOZARIL ADDITIONAL INFO: OFF LABEL
     Route: 040
     Dates: start: 20150930
  24. TRASTUZUMAB [Suspect]
     Active Substance: TRASTUZUMAB
     Route: 065
  25. TRASTUZUMAB [Suspect]
     Active Substance: TRASTUZUMAB
     Route: 040
     Dates: start: 20150930
  26. TRASTUZUMAB [Suspect]
     Active Substance: TRASTUZUMAB
     Dosage: 1218 MILLIGRAM, QWK WE (609 MG, 2/W)
     Route: 065
     Dates: start: 20150930
  27. TRASTUZUMAB [Suspect]
     Active Substance: TRASTUZUMAB
     Dosage: 420 MG, Q3W (CUMULATIVE DOSE: 820.83 MG)
     Route: 065
  28. TRASTUZUMAB [Suspect]
     Active Substance: TRASTUZUMAB
     Dosage: 840 MILLIGRAM, Q3WK (CUMULATIVE DOSE: 2481.6667
     Route: 065
  29. TRASTUZUMAB [Suspect]
     Active Substance: TRASTUZUMAB
     Dosage: 1218 MILLIGRAM, QWK
     Route: 065
     Dates: start: 20150930
  30. TRASTUZUMAB [Suspect]
     Active Substance: TRASTUZUMAB
     Dosage: 1827 MILLIGRAM, QWK
     Route: 065
     Dates: start: 20150930
  31. TRASTUZUMAB [Suspect]
     Active Substance: TRASTUZUMAB
     Dosage: 600 MILLIGRAM, QWK
     Route: 065
     Dates: start: 20150930
  32. XGEVA [Suspect]
     Active Substance: DENOSUMAB
     Indication: Metastases to bone
     Route: 058
     Dates: start: 20150930
  33. XGEVA [Suspect]
     Active Substance: DENOSUMAB
     Indication: Gastrooesophageal reflux disease
     Dosage: 625 MILLIGRAM, QID
     Route: 058
  34. ARIPIPRAZOLE [Suspect]
     Active Substance: ARIPIPRAZOLE
     Indication: Schizophrenia
     Route: 048
  35. ARIPIPRAZOLE [Suspect]
     Active Substance: ARIPIPRAZOLE
     Indication: Schizophrenia
     Route: 065
  36. ARIPIPRAZOLE [Suspect]
     Active Substance: ARIPIPRAZOLE
     Indication: Product used for unknown indication
     Route: 048
  37. ARIPIPRAZOLE [Suspect]
     Active Substance: ARIPIPRAZOLE
     Route: 048
  38. RISPERDAL [Suspect]
     Active Substance: RISPERIDONE
     Indication: Schizophrenia
     Dosage: 3 MILLIGRAM, Q12H
     Route: 048
  39. RISPERDAL [Suspect]
     Active Substance: RISPERIDONE
     Dosage: 4 MILLIGRAM, BID
     Route: 048
  40. RISPERDAL [Suspect]
     Active Substance: RISPERIDONE
     Dosage: 4 MILLIGRAM, QD
     Route: 065
  41. RISPERDAL [Suspect]
     Active Substance: RISPERIDONE
     Dosage: 6 MILLIGRAM, QD
     Route: 048
  42. RISPERDAL [Suspect]
     Active Substance: RISPERIDONE
     Dosage: 3 MILLIGRAM, BID
     Route: 048
  43. RISPERDAL [Suspect]
     Active Substance: RISPERIDONE
     Dosage: 1 MILLIGRAM, QD
     Route: 048
  44. RISPERDAL [Suspect]
     Active Substance: RISPERIDONE
     Dosage: 1 GRAM, QD
     Route: 048
  45. CHLORPROMAZINE [Suspect]
     Active Substance: CHLORPROMAZINE
     Indication: Schizophrenia
     Route: 048
  46. CHLORPROMAZINE [Suspect]
     Active Substance: CHLORPROMAZINE
     Route: 065
  47. CHLORPROMAZINE [Suspect]
     Active Substance: CHLORPROMAZINE
     Route: 048
  48. ZUCLOPENTHIXOL [Suspect]
     Active Substance: ZUCLOPENTHIXOL
     Indication: Product used for unknown indication
     Dosage: 800 MILLIGRAM, QWK
     Route: 048
     Dates: start: 20030204, end: 20040217
  49. ZUCLOPENTHIXOL [Suspect]
     Active Substance: ZUCLOPENTHIXOL
     Dosage: 400 MILLIGRAM, QWK
     Route: 048
     Dates: start: 20040217, end: 20040601
  50. ZUCLOPENTHIXOL [Suspect]
     Active Substance: ZUCLOPENTHIXOL
     Route: 048
     Dates: start: 20040217, end: 20040601
  51. ZUCLOPENTHIXOL [Suspect]
     Active Substance: ZUCLOPENTHIXOL
     Dosage: 300 MILLIGRAM, QWK
     Route: 048
     Dates: start: 20091018
  52. HALDOL [Suspect]
     Active Substance: HALOPERIDOL
     Indication: Schizophrenia
     Dosage: 40 MILLIGRAM, QD
     Route: 048
  53. HALDOL [Suspect]
     Active Substance: HALOPERIDOL
     Dosage: 20 MILLIGRAM, QD
     Route: 048
  54. HALDOL [Suspect]
     Active Substance: HALOPERIDOL
     Dosage: 10 MILLIGRAM, QD
     Route: 048
  55. HALDOL [Suspect]
     Active Substance: HALOPERIDOL
     Dosage: 20 MILLIGRAM, Q12H
     Route: 048
  56. HALDOL [Suspect]
     Active Substance: HALOPERIDOL
     Dosage: 20 MILLIGRAM, BID
     Route: 048
  57. LITHIUM [Suspect]
     Active Substance: LITHIUM
     Indication: Schizophrenia
     Route: 048
  58. LITHIUM [Suspect]
     Active Substance: LITHIUM
     Route: 048
  59. LITHIUM [Suspect]
     Active Substance: LITHIUM
     Route: 048
  60. LITHIUM [Suspect]
     Active Substance: LITHIUM
     Dosage: 6 MILLIGRAM, QD
     Route: 048
  61. RISPERIDONE [Suspect]
     Active Substance: RISPERIDONE
     Indication: Schizophrenia
     Route: 048
  62. RISPERIDONE [Suspect]
     Active Substance: RISPERIDONE
     Indication: Schizophrenia
     Dosage: 1 GRAM, QD
     Route: 048
  63. RISPERIDONE [Suspect]
     Active Substance: RISPERIDONE
     Dosage: 12 MILLIGRAM, QD
     Route: 048
  64. RISPERIDONE [Suspect]
     Active Substance: RISPERIDONE
     Dosage: 2 MILLIGRAM, BID
     Route: 048
  65. RISPERIDONE [Suspect]
     Active Substance: RISPERIDONE
     Dosage: 2 MILLIGRAM, QD
     Route: 048
  66. RISPERIDONE [Suspect]
     Active Substance: RISPERIDONE
     Dosage: 3 MILLIGRAM, QD
     Route: 048
  67. RISPERIDONE [Suspect]
     Active Substance: RISPERIDONE
     Route: 048
  68. RISPERIDONE [Suspect]
     Active Substance: RISPERIDONE
     Route: 048
  69. CLOZARIL [Suspect]
     Active Substance: CLOZAPINE
     Indication: Schizophrenia
     Route: 048
  70. CLOZARIL [Suspect]
     Active Substance: CLOZAPINE
     Indication: Schizophrenia
     Dosage: 300 MG, 1X/DAY (PM)
     Route: 048
  71. CLOZARIL [Suspect]
     Active Substance: CLOZAPINE
     Dosage: UNK UNK, QD
     Route: 048
     Dates: start: 20100823
  72. CLOZARIL [Suspect]
     Active Substance: CLOZAPINE
     Dosage: 1 DOSAGE FORM, QD
     Route: 048
     Dates: start: 2011
  73. CLOZARIL [Suspect]
     Active Substance: CLOZAPINE
     Dosage: 1 DOSAGE FORM, QD
     Route: 048
     Dates: start: 2011
  74. CLOZARIL [Suspect]
     Active Substance: CLOZAPINE
     Dosage: 100 MILLIGRAM, QD
     Route: 048
     Dates: start: 20191209, end: 20191223
  75. CLOZARIL [Suspect]
     Active Substance: CLOZAPINE
     Dosage: 100 MILLIGRAM, QD
     Route: 048
     Dates: start: 2011
  76. CLOZARIL [Suspect]
     Active Substance: CLOZAPINE
     Dosage: 100 MILLIGRAM, QD
     Route: 065
  77. CLOZARIL [Suspect]
     Active Substance: CLOZAPINE
     Dosage: 800 MILLIGRAM, QD (DOSE TEXT: 800 MG, QD; CUMULATIVE DOSE TO FIRST REACTION: 1490400.0 MG)
     Route: 048
     Dates: start: 20191223, end: 20191223
  78. CLOZARIL [Suspect]
     Active Substance: CLOZAPINE
     Dosage: 800 MG, QD (800 MG, QD; CUMULATIVE DOSE TO FIRST REACTION: 1490400.0 MG)
     Route: 048
     Dates: start: 20201207
  79. CLOZARIL [Suspect]
     Active Substance: CLOZAPINE
     Dosage: 400 MILLIGRAM, QD
     Route: 065
     Dates: start: 20201207
  80. CLOZARIL [Suspect]
     Active Substance: CLOZAPINE
     Dosage: 800 MILLIGRAM, QD
     Route: 048
     Dates: start: 20201207
  81. CLOZARIL [Suspect]
     Active Substance: CLOZAPINE
     Route: 065
     Dates: end: 2020
  82. CLOZARIL [Suspect]
     Active Substance: CLOZAPINE
     Dosage: 400 MILLIGRAM, QD (400 MG, QD (200 MG, BID)
     Route: 048
  83. CLOZARIL [Suspect]
     Active Substance: CLOZAPINE
     Dosage: 400 MILLIGRAM, QD
     Route: 048
     Dates: start: 20191223
  84. CLOZARIL [Suspect]
     Active Substance: CLOZAPINE
     Dosage: 275 MILLIGRAM, QD
     Route: 065
  85. CLOZARIL [Suspect]
     Active Substance: CLOZAPINE
     Dosage: 1 DOSAGE FORM, QD
     Route: 048
  86. CLOZARIL [Suspect]
     Active Substance: CLOZAPINE
     Route: 065
  87. CLOZARIL [Suspect]
     Active Substance: CLOZAPINE
     Route: 048
     Dates: start: 20220719
  88. CLOZARIL [Suspect]
     Active Substance: CLOZAPINE
     Dosage: 275 MILLIGRAM, QD (PM) (CUMULATIVE DOSE:457313.53 MG)
     Route: 048
     Dates: start: 20200521
  89. CLOZARIL [Suspect]
     Active Substance: CLOZAPINE
     Route: 065
     Dates: start: 20191209, end: 20191223
  90. CLOZARIL [Suspect]
     Active Substance: CLOZAPINE
     Route: 048
     Dates: start: 2011
  91. CLOZARIL [Suspect]
     Active Substance: CLOZAPINE
     Dosage: 6000 MILLIGRAM, QD
     Route: 048
     Dates: start: 20100823
  92. CLOZARIL [Suspect]
     Active Substance: CLOZAPINE
     Dosage: 400 MILLIGRAM, QD
     Route: 048
     Dates: start: 20191223, end: 20191223
  93. CLOZARIL [Suspect]
     Active Substance: CLOZAPINE
     Route: 048
     Dates: start: 20201207
  94. CLOZARIL [Suspect]
     Active Substance: CLOZAPINE
     Route: 065
  95. CLOZARIL [Suspect]
     Active Substance: CLOZAPINE
     Dosage: 300 MILLIGRAM, QD, PM
     Route: 065
  96. CLOZARIL [Suspect]
     Active Substance: CLOZAPINE
     Dosage: 200 MILLIGRAM, BID
     Route: 065
  97. CLOZARIL [Suspect]
     Active Substance: CLOZAPINE
     Dosage: 100 MILLIGRAM, QD (CUMULATIVE DOSE: 6000 MG; ADDITIONAL INFORMATION ON DRUG: CLOZARIL)
     Route: 065
     Dates: start: 20200521
  98. CLOZARIL [Suspect]
     Active Substance: CLOZAPINE
     Route: 048
     Dates: start: 20191207
  99. CLOZARIL [Suspect]
     Active Substance: CLOZAPINE
     Route: 065
     Dates: start: 20100823, end: 20100823
  100. CLOZARIL [Suspect]
     Active Substance: CLOZAPINE
     Route: 065
  101. CLOZARIL [Suspect]
     Active Substance: CLOZAPINE
     Route: 065
  102. CLOZARIL [Suspect]
     Active Substance: CLOZAPINE
     Dosage: 800 MILLIGRAM, QD
     Route: 065
     Dates: start: 20201207
  103. CLOZARIL [Suspect]
     Active Substance: CLOZAPINE
     Route: 048
     Dates: start: 20201207
  104. CLOZARIL [Suspect]
     Active Substance: CLOZAPINE
     Dosage: 275 MILLIGRAM, QD
     Route: 048
     Dates: start: 20200521, end: 20200521
  105. CLOZARIL [Suspect]
     Active Substance: CLOZAPINE
     Dosage: 100 MILLIGRAM, QD
     Route: 048
     Dates: start: 2011
  106. CLOZARIL [Suspect]
     Active Substance: CLOZAPINE
     Route: 048
     Dates: start: 20191223, end: 20191223
  107. CLOZARIL [Suspect]
     Active Substance: CLOZAPINE
     Dosage: 245 MILLIGRAM, QD
     Route: 048
     Dates: start: 20190823, end: 20190823
  108. CLOZARIL [Suspect]
     Active Substance: CLOZAPINE
     Route: 048
     Dates: start: 20201207
  109. CLOZARIL [Suspect]
     Active Substance: CLOZAPINE
     Route: 048
     Dates: start: 20191223, end: 20191223
  110. CLOZARIL [Suspect]
     Active Substance: CLOZAPINE
     Dosage: 50 MILLIGRAM, QD
     Route: 048
     Dates: start: 20191209, end: 20191223
  111. CLOZARIL [Suspect]
     Active Substance: CLOZAPINE
     Dosage: 400 MILLIGRAM, QD
     Route: 065
     Dates: start: 20201207
  112. CLOZARIL [Suspect]
     Active Substance: CLOZAPINE
     Route: 048
     Dates: start: 20201209, end: 20201223
  113. CLOZARIL [Suspect]
     Active Substance: CLOZAPINE
     Dosage: 50 MILLIGRAM, QD
     Route: 048
     Dates: start: 20190809, end: 20190823
  114. CLOZARIL [Suspect]
     Active Substance: CLOZAPINE
     Dosage: 245 MILLIGRAM, QD
     Route: 048
     Dates: start: 20191207
  115. CLOZARIL [Suspect]
     Active Substance: CLOZAPINE
     Dosage: 600 MILLIGRAM, QD (ADDITIONAL INFORMATION ON DRUG: CLOZARIL ADDITIONAL INFO: OFF LABEL USE; CUMULATI
     Route: 048
     Dates: start: 2011
  116. CLOZARIL [Suspect]
     Active Substance: CLOZAPINE
     Route: 048
  117. CLOZARIL [Suspect]
     Active Substance: CLOZAPINE
     Dosage: 200 MILLIGRAM, BID
     Route: 065
     Dates: start: 20191209, end: 20191223
  118. CLOZARIL [Suspect]
     Active Substance: CLOZAPINE
     Dosage: 275 MILLIGRAM, QD (PM)
     Route: 065
  119. OLANZAPINE [Suspect]
     Active Substance: OLANZAPINE
     Indication: Schizophrenia
     Route: 048
  120. OLANZAPINE [Suspect]
     Active Substance: OLANZAPINE
     Route: 048
  121. OLANZAPINE [Suspect]
     Active Substance: OLANZAPINE
     Route: 048
  122. OLANZAPINE [Suspect]
     Active Substance: OLANZAPINE
     Route: 048
     Dates: start: 20240217
  123. OLANZAPINE [Suspect]
     Active Substance: OLANZAPINE
     Dosage: 15 MILLIGRAM, QD
     Route: 048
     Dates: start: 20040217
  124. OLANZAPINE [Suspect]
     Active Substance: OLANZAPINE
     Route: 048
     Dates: start: 20060704
  125. OLANZAPINE [Suspect]
     Active Substance: OLANZAPINE
     Route: 048
     Dates: start: 20080823
  126. ZUCLOPENTHIXOL [Suspect]
     Active Substance: ZUCLOPENTHIXOL
     Indication: Schizophrenia
     Route: 030
     Dates: start: 20030204, end: 20041018
  127. ZUCLOPENTHIXOL [Suspect]
     Active Substance: ZUCLOPENTHIXOL
     Indication: Off label use
     Route: 030
     Dates: start: 20030204, end: 20040217
  128. ZUCLOPENTHIXOL [Suspect]
     Active Substance: ZUCLOPENTHIXOL
     Dosage: 800 MILLIGRAM, QWK
     Route: 030
     Dates: end: 20040217
  129. ZUCLOPENTHIXOL [Suspect]
     Active Substance: ZUCLOPENTHIXOL
     Dosage: 400 MG, WEEKLY (1/W)
     Route: 030
     Dates: start: 20040217, end: 20040601
  130. ZUCLOPENTHIXOL [Suspect]
     Active Substance: ZUCLOPENTHIXOL
     Route: 030
     Dates: start: 20030204, end: 20040217
  131. ZUCLOPENTHIXOL [Suspect]
     Active Substance: ZUCLOPENTHIXOL
     Route: 030
     Dates: start: 20040217, end: 20040601
  132. ZUCLOPENTHIXOL [Suspect]
     Active Substance: ZUCLOPENTHIXOL
     Dosage: 400 MILLIGRAM, Q2WK
     Route: 030
     Dates: start: 20040601, end: 20041018
  133. ZUCLOPENTHIXOL [Suspect]
     Active Substance: ZUCLOPENTHIXOL
     Dosage: 400 MILLIGRAM, QWK
     Route: 030
     Dates: start: 20041018, end: 20041018
  134. ZUCLOPENTHIXOL [Suspect]
     Active Substance: ZUCLOPENTHIXOL
     Dosage: 300 MILLIGRAM, QWK
     Route: 030
     Dates: start: 20091009, end: 20091018
  135. ZUCLOPENTHIXOL [Suspect]
     Active Substance: ZUCLOPENTHIXOL
     Dosage: 300 MILLIGRAM, QWK
     Route: 030
     Dates: start: 20091018
  136. ZUCLOPENTHIXOL [Suspect]
     Active Substance: ZUCLOPENTHIXOL
     Dosage: 300 MILLIGRAM, QWK
     Route: 030
     Dates: start: 20091009
  137. ZUCLOPENTHIXOL [Suspect]
     Active Substance: ZUCLOPENTHIXOL
     Route: 030
  138. ZUCLOPENTHIXOL [Suspect]
     Active Substance: ZUCLOPENTHIXOL
     Route: 030
     Dates: start: 20041018
  139. ZUCLOPENTHIXOL [Suspect]
     Active Substance: ZUCLOPENTHIXOL
     Route: 030
  140. LORAZEPAM [Suspect]
     Active Substance: LORAZEPAM
     Indication: Schizophrenia
     Route: 048
  141. LORAZEPAM [Suspect]
     Active Substance: LORAZEPAM
     Route: 048
  142. LORAZEPAM [Suspect]
     Active Substance: LORAZEPAM
     Route: 048
  143. LORAZEPAM [Suspect]
     Active Substance: LORAZEPAM
     Route: 048
  144. LORAZEPAM [Suspect]
     Active Substance: LORAZEPAM
     Route: 048
  145. LORAZEPAM [Suspect]
     Active Substance: LORAZEPAM
     Route: 048
  146. LORAZEPAM [Suspect]
     Active Substance: LORAZEPAM
     Route: 048
  147. LORAZEPAM [Suspect]
     Active Substance: LORAZEPAM
     Route: 048
  148. LORAZEPAM [Suspect]
     Active Substance: LORAZEPAM
     Route: 048
  149. LORAZEPAM [Suspect]
     Active Substance: LORAZEPAM
     Route: 048
  150. LORAZEPAM [Suspect]
     Active Substance: LORAZEPAM
     Route: 048
  151. TAXOL [Suspect]
     Active Substance: PACLITAXEL
     Indication: Breast cancer metastatic
     Route: 042
     Dates: start: 20151223, end: 20151223
  152. TAXOL [Suspect]
     Active Substance: PACLITAXEL
     Route: 065
     Dates: start: 20151111
  153. TAXOL [Suspect]
     Active Substance: PACLITAXEL
     Dosage: 150 MILLIGRAM, QWK
     Route: 040
     Dates: start: 20151111, end: 20151222
  154. TAXOL [Suspect]
     Active Substance: PACLITAXEL
     Dosage: 120 MILLIGRAM, QWK
     Route: 065
     Dates: start: 20151223
  155. TAXOL [Suspect]
     Active Substance: PACLITAXEL
     Dosage: 150 MILLIGRAM, QWK
     Route: 050
     Dates: start: 20151223, end: 20151223
  156. HALOPERIDOL [Suspect]
     Active Substance: HALOPERIDOL
     Indication: Schizophrenia
     Dosage: 40 MILLIGRAM, QD (20 MG, BID)
     Route: 048
  157. HALOPERIDOL [Suspect]
     Active Substance: HALOPERIDOL
     Dosage: 10 MILLIGRAM, QD
     Route: 048
  158. HALOPERIDOL [Suspect]
     Active Substance: HALOPERIDOL
     Dosage: 5 MILLIGRAM, BID
     Route: 048
  159. HALOPERIDOL [Suspect]
     Active Substance: HALOPERIDOL
     Dosage: 10 MILLIGRAM, BID
     Route: 048
  160. HALOPERIDOL [Suspect]
     Active Substance: HALOPERIDOL
     Dosage: 10 MILLIGRAM, QD
     Route: 048
  161. HALOPERIDOL [Suspect]
     Active Substance: HALOPERIDOL
     Dosage: 5 MILLIGRAM, QD
     Route: 065
  162. HALOPERIDOL [Suspect]
     Active Substance: HALOPERIDOL
     Dosage: 10 MILLIGRAM, Q12H
     Route: 048
  163. HALOPERIDOL [Suspect]
     Active Substance: HALOPERIDOL
     Dosage: 10 MILLIGRAM, BID
     Route: 048
  164. HALOPERIDOL [Suspect]
     Active Substance: HALOPERIDOL
     Dosage: 20 MILLIGRAM, QD
     Route: 048
  165. HALOPERIDOL [Suspect]
     Active Substance: HALOPERIDOL
     Route: 048
  166. HALOPERIDOL [Suspect]
     Active Substance: HALOPERIDOL
     Dosage: 40 MILLIGRAM, QD, 20 MG BID
     Route: 048
  167. HALOPERIDOL [Suspect]
     Active Substance: HALOPERIDOL
     Dosage: 5 MILLIGRAM, BID
     Route: 048
  168. HALOPERIDOL [Suspect]
     Active Substance: HALOPERIDOL
     Dosage: 10 MILLIGRAM, BID
     Route: 065
  169. DOCETAXEL [Suspect]
     Active Substance: DOCETAXEL
     Indication: Breast cancer metastatic
     Route: 065
     Dates: start: 201509
  170. DOCETAXEL [Suspect]
     Active Substance: DOCETAXEL
     Route: 042
  171. DOCETAXEL [Suspect]
     Active Substance: DOCETAXEL
     Dosage: 220 MILLIGRAM, Q3WK
     Route: 065
     Dates: start: 20151222
  172. PERTUZUMAB [Suspect]
     Active Substance: PERTUZUMAB
     Indication: Breast cancer metastatic
     Route: 042
     Dates: start: 20151021
  173. PERTUZUMAB [Suspect]
     Active Substance: PERTUZUMAB
     Route: 042
     Dates: start: 20150930
  174. PERTUZUMAB [Suspect]
     Active Substance: PERTUZUMAB
     Route: 050
  175. PERTUZUMAB [Suspect]
     Active Substance: PERTUZUMAB
     Dosage: 2IU, QWK
     Route: 042
  176. DOCETAXEL [Suspect]
     Active Substance: DOCETAXEL
     Indication: Breast cancer metastatic
     Dosage: 110 MILLIGRAM, Q3WK
     Route: 050
     Dates: start: 20150930, end: 20151021
  177. DOCETAXEL [Suspect]
     Active Substance: DOCETAXEL
     Route: 050
     Dates: start: 20151222
  178. DOCETAXEL [Suspect]
     Active Substance: DOCETAXEL
     Route: 050
  179. DOCETAXEL [Suspect]
     Active Substance: DOCETAXEL
     Route: 050
  180. PACLITAXEL [Suspect]
     Active Substance: PACLITAXEL
     Indication: Breast cancer metastatic
     Dosage: 120 MG, QW, (CUMULATIVE DOSE: 377.142)
     Route: 065
     Dates: start: 20151223, end: 20151223
  181. PACLITAXEL [Suspect]
     Active Substance: PACLITAXEL
     Dosage: 120 MG, QW, CUMULATIVE DOSE: 19662.8571 MG
     Route: 065
     Dates: start: 20151111
  182. PACLITAXEL [Suspect]
     Active Substance: PACLITAXEL
     Dosage: 150 MG, QW, CUMULATIVE DOSE: 428.57 MG, 24578.5714
     Route: 065
     Dates: start: 20151111, end: 20151222
  183. ACETAMINOPHEN [Suspect]
     Active Substance: ACETAMINOPHEN
     Indication: Pain
     Route: 048
  184. RANITIDINE [Concomitant]
     Active Substance: RANITIDINE
     Indication: Gastrooesophageal reflux disease
     Dosage: 150 MILLIGRAM, QWK
     Route: 058
  185. RANITIDINE [Concomitant]
     Active Substance: RANITIDINE
     Dosage: CUMULATIVE DOSE: 142.857, 8192.85714 MG
     Route: 058
     Dates: start: 20151111
  186. RANITIDINE [Concomitant]
     Active Substance: RANITIDINE
     Dosage: 75 MILLIGRAM, QWK
     Route: 058
     Dates: start: 20151111
  187. TAZOBACTAM SODIUM [Concomitant]
     Active Substance: TAZOBACTAM SODIUM
     Indication: Febrile neutropenia
     Route: 065
     Dates: start: 20151121
  188. CALCIUM\CHOLECALCIFEROL [Concomitant]
     Active Substance: CALCIUM\CHOLECALCIFEROL
     Dosage: 2 DOSAGE FORM, QD
     Dates: start: 20091018
  189. CALCIUM\CHOLECALCIFEROL [Concomitant]
     Active Substance: CALCIUM\CHOLECALCIFEROL
     Dosage: 2 DOSAGE FORM, QD
     Route: 048
     Dates: start: 20090118
  190. PREGABALIN [Concomitant]
     Active Substance: PREGABALIN
     Indication: Product used for unknown indication
     Route: 048
     Dates: start: 201509
  191. AMOXICILLIN\CLAVULANATE POTASSIUM [Concomitant]
     Active Substance: AMOXICILLIN\CLAVULANATE POTASSIUM
     Indication: Febrile neutropenia
     Route: 048
     Dates: start: 20151122
  192. AMOXICILLIN\CLAVULANATE POTASSIUM [Concomitant]
     Active Substance: AMOXICILLIN\CLAVULANATE POTASSIUM
     Route: 048
     Dates: start: 20151111
  193. AMOXICILLIN\CLAVULANATE POTASSIUM [Concomitant]
     Active Substance: AMOXICILLIN\CLAVULANATE POTASSIUM
     Route: 048
     Dates: start: 20151122, end: 20151125
  194. AMOXICILLIN\CLAVULANATE POTASSIUM [Concomitant]
     Active Substance: AMOXICILLIN\CLAVULANATE POTASSIUM
     Dosage: 2500 MILLIGRAM, QD
     Route: 048
     Dates: start: 20151122, end: 20151125
  195. LEVOFLOXACIN [Concomitant]
     Active Substance: LEVOFLOXACIN
     Indication: Febrile neutropenia
     Dosage: 500 MILLIGRAM, QD
     Route: 048
     Dates: start: 20151125
  196. MORPHINE [Concomitant]
     Active Substance: MORPHINE
     Indication: Pain
     Route: 048
     Dates: start: 201509
  197. MORPHINE [Concomitant]
     Active Substance: MORPHINE
     Dosage: 15 MILLIGRAM, QD
     Route: 048
     Dates: start: 201509
  198. MORPHINE [Concomitant]
     Active Substance: MORPHINE
     Dosage: 60 MILLIGRAM, QD
     Route: 048
     Dates: start: 201509
  199. MORPHINE [Concomitant]
     Active Substance: MORPHINE
     Route: 048
  200. GENTAMICIN [Concomitant]
     Active Substance: GENTAMICIN
     Indication: Febrile neutropenia
     Route: 040
     Dates: start: 20151121
  201. GENTAMICIN [Concomitant]
     Active Substance: GENTAMICIN
     Route: 040
  202. GENTAMICIN [Concomitant]
     Active Substance: GENTAMICIN
     Route: 040
  203. PIPERACILLIN SODIUM\TAZOBACTAM SODIUM [Concomitant]
     Active Substance: PIPERACILLIN SODIUM\TAZOBACTAM SODIUM
     Indication: Febrile neutropenia
     Route: 065
     Dates: start: 20151121
  204. MIRTAZAPINE [Concomitant]
     Active Substance: MIRTAZAPINE
     Indication: Product used for unknown indication
     Dosage: 15 MILLIGRAM, QD
     Route: 048
     Dates: start: 201510
  205. MORPHINE SULFATE [Concomitant]
     Active Substance: MORPHINE SULFATE
     Indication: Product used for unknown indication
     Route: 065
     Dates: start: 201509
  206. CHLORPHENIRAMINE MALEATE [Concomitant]
     Active Substance: CHLORPHENIRAMINE MALEATE
     Indication: Product used for unknown indication
     Dosage: 10 MILLIGRAM, QWK
     Route: 058
     Dates: start: 20151111
  207. CHOLECALCIFEROL [Concomitant]
     Active Substance: CHOLECALCIFEROL
     Indication: Product used for unknown indication
     Dosage: 2 DOSAGE FORM, QD
     Route: 048
  208. DULOXETINE [Concomitant]
     Active Substance: DULOXETINE
     Indication: Breast cancer metastatic
     Route: 040
     Dates: start: 20150930, end: 20151021
  209. CHLORPHENIRAMINE MALEATE [Concomitant]
     Active Substance: CHLORPHENIRAMINE MALEATE
     Indication: Breast cancer metastatic
     Dosage: 10 MILLIGRAM, QWK
     Route: 058
     Dates: start: 20151111

REACTIONS (38)
  - Thrombocytopenia [Fatal]
  - Leukocytosis [Fatal]
  - Mucosal inflammation [Fatal]
  - Leukopenia [Fatal]
  - Neutropenia [Fatal]
  - Rhinalgia [Fatal]
  - Neuropathy peripheral [Fatal]
  - Nausea [Fatal]
  - Dyspepsia [Fatal]
  - Diarrhoea [Fatal]
  - Cellulitis [Fatal]
  - Alopecia [Fatal]
  - Platelet count decreased [Fatal]
  - Fatigue [Fatal]
  - Delusion of grandeur [Fatal]
  - Incorrect dose administered [Fatal]
  - Lymphocyte count abnormal [Fatal]
  - SARS-CoV-2 test positive [Fatal]
  - Neutrophil count decreased [Fatal]
  - Hallucination, auditory [Fatal]
  - Extrapyramidal disorder [Fatal]
  - Affective disorder [Fatal]
  - Psychotic disorder [Fatal]
  - Schizophrenia [Fatal]
  - Disease progression [Fatal]
  - Neutrophil count increased [Fatal]
  - Seizure [Fatal]
  - Overdose [Fatal]
  - COVID-19 [Fatal]
  - Neoplasm progression [Fatal]
  - Intentional product misuse [Fatal]
  - Lymphocyte count decreased [Fatal]
  - Off label use [Fatal]
  - Off label use [Fatal]
  - Fatigue [Fatal]
  - Fatigue [Fatal]
  - Extrapyramidal disorder [Fatal]
  - Hospitalisation [Fatal]

NARRATIVE: CASE EVENT DATE: 20151101
